FAERS Safety Report 20984543 (Version 1)
Quarter: 2022Q2

REPORT INFORMATION
  Report Type: Spontaneous
  Country: US (occurrence: None)
  Receive Date: 20220621
  Receipt Date: 20220621
  Transmission Date: 20220721
  Serious: No
  Sender: FDA-Public Use
  Company Number: US-ROCHE-2863887

PATIENT
  Sex: Female

DRUGS (2)
  1. CAPECITABINE [Suspect]
     Active Substance: CAPECITABINE
     Indication: Product used for unknown indication
     Route: 048
  2. TUKYSA [Suspect]
     Active Substance: TUCATINIB
     Indication: Breast cancer female
     Route: 065

REACTIONS (16)
  - Somnolence [Unknown]
  - Fatigue [Unknown]
  - Diarrhoea [Unknown]
  - Haemorrhoids [Unknown]
  - Skin laceration [Unknown]
  - Blister [Unknown]
  - Dry skin [Unknown]
  - Hyperaesthesia [Unknown]
  - Nail discolouration [Unknown]
  - Skin ulcer [Unknown]
  - Nail disorder [Unknown]
  - Pain in extremity [Unknown]
  - Muscular weakness [Unknown]
  - Peripheral swelling [Unknown]
  - Lymphoedema [Unknown]
  - Blister [Unknown]
